FAERS Safety Report 15134887 (Version 6)
Quarter: 2019Q4

REPORT INFORMATION
  Report Type: Report from Study
  Country: BR (occurrence: BR)
  Receive Date: 20180712
  Receipt Date: 20191218
  Transmission Date: 20200122
  Serious: Yes (Other)
  Sender: FDA-Public Use
  Company Number: BR-ROCHE-2152297

PATIENT
  Age: 64 Year
  Sex: Female
  Weight: 75 kg

DRUGS (10)
  1. XOLAIR [Suspect]
     Active Substance: OMALIZUMAB
     Route: 058
     Dates: start: 20171123
  2. XOLAIR [Suspect]
     Active Substance: OMALIZUMAB
     Indication: ASTHMA
     Route: 058
     Dates: start: 201710
  3. XOLAIR [Suspect]
     Active Substance: OMALIZUMAB
     Route: 058
  4. XOLAIR [Suspect]
     Active Substance: OMALIZUMAB
     Route: 058
     Dates: start: 20191120
  5. FOSTAIR [Concomitant]
     Active Substance: BECLOMETHASONE\FORMOTEROL
     Indication: ASTHMA
     Route: 055
     Dates: start: 201709
  6. XOLAIR [Suspect]
     Active Substance: OMALIZUMAB
     Route: 058
     Dates: start: 20181213
  7. ATACAND [Concomitant]
     Active Substance: CANDESARTAN CILEXETIL
     Indication: HYPERTENSION
     Dosage: (16/12.5 MG) (STARTED 6 YEARS AGO)
     Route: 048
  8. XOLAIR [Suspect]
     Active Substance: OMALIZUMAB
     Route: 058
     Dates: start: 201803
  9. CORTISONE [Suspect]
     Active Substance: CORTISONE
     Indication: PRODUCT USED FOR UNKNOWN INDICATION
     Route: 065
  10. PURAN [Concomitant]
     Active Substance: LEVOTHYROXINE SODIUM
     Indication: HYPOTHYROIDISM
     Dosage: STARTED 20 YEARS AGO
     Route: 048

REACTIONS (19)
  - Bronchial obstruction [Recovering/Resolving]
  - Asthmatic crisis [Unknown]
  - Nasopharyngitis [Recovered/Resolved]
  - Visual impairment [Unknown]
  - Fatigue [Recovering/Resolving]
  - Application site pruritus [Recovering/Resolving]
  - Dyspnoea [Recovered/Resolved]
  - Secretion discharge [Unknown]
  - Injection site pain [Unknown]
  - Overweight [Unknown]
  - Productive cough [Recovering/Resolving]
  - Oropharyngeal discomfort [Recovering/Resolving]
  - Nasopharyngitis [Recovering/Resolving]
  - Influenza [Recovered/Resolved]
  - Cough [Unknown]
  - Application site erythema [Recovered/Resolved]
  - Increased upper airway secretion [Recovering/Resolving]
  - Chest discomfort [Unknown]
  - Throat irritation [Recovering/Resolving]

NARRATIVE: CASE EVENT DATE: 20180701
